FAERS Safety Report 5677292-4 (Version None)
Quarter: 2008Q1

REPORT INFORMATION
  Report Type: 
  Country: None (occurrence: None)
  Receive Date: 20080320
  Receipt Date: 20080320
  Transmission Date: 20080703
  Serious: Yes (Other)
  Sender: FDA-Public Use
  Company Number: None

PATIENT
  Sex: Female
  Weight: 23.587 kg

DRUGS (3)
  1. NIX [Suspect]
     Indication: LICE INFESTATION
     Dosage: USED 2 TIMES
     Dates: start: 20080218, end: 20080319
  2. BEDDING SPRAY [Concomitant]
     Dosage: USED TWICE
  3. QUIT KNITS [Concomitant]
     Dosage: EVERY DAY FOR 12 DAYS

REACTIONS (3)
  - ABDOMINAL PAIN UPPER [None]
  - DRUG INEFFECTIVE [None]
  - SINUSITIS [None]
